FAERS Safety Report 4809493-9 (Version None)
Quarter: 2005Q4

REPORT INFORMATION
  Report Type: 
  Country: None (occurrence: None)
  Receive Date: 20051025
  Receipt Date: 20050722
  Transmission Date: 20060501
  Serious: Yes (Death, Other)
  Sender: FDA-Public Use
  Company Number: US-MERCK-0507USA03858

PATIENT
  Age: 66 Year
  Sex: Male
  Weight: 108 kg

DRUGS (9)
  1. VIOXX [Suspect]
     Indication: ARTHRALGIA
     Route: 048
     Dates: start: 19990831, end: 20000201
  2. VIOXX [Suspect]
     Route: 048
     Dates: start: 20031126, end: 20040517
  3. FUROSEMIDE [Concomitant]
     Indication: HYPERTENSION
     Route: 065
     Dates: start: 19971001, end: 20030901
  4. AMBIEN [Concomitant]
     Indication: SLEEP DISORDER THERAPY
     Route: 065
     Dates: start: 20031126
  5. AMBIEN [Concomitant]
     Route: 065
     Dates: start: 20040225
  6. CATAPRES [Concomitant]
     Indication: POLYURIA
     Route: 065
     Dates: start: 19971001, end: 20030901
  7. LEXXEL [Concomitant]
     Indication: POLYURIA
     Route: 065
     Dates: start: 19970701, end: 20040517
  8. POTASSIUM (UNSPECIFIED) [Concomitant]
     Indication: HYPERTENSION
     Route: 065
  9. OXYCONTIN [Concomitant]
     Route: 065
     Dates: start: 20040225

REACTIONS (8)
  - ANDROGEN DEFICIENCY [None]
  - DEATH [None]
  - DIZZINESS [None]
  - FALL [None]
  - HEADACHE [None]
  - LIMB INJURY [None]
  - MYOCARDIAL INFARCTION [None]
  - PRURITUS [None]
